FAERS Safety Report 11664350 (Version 1)
Quarter: 2015Q4

REPORT INFORMATION
  Report Type: Spontaneous
  Country: US (occurrence: None)
  Receive Date: 20151026
  Receipt Date: 20151026
  Transmission Date: 20160304
  Serious: Yes (Other)
  Sender: FDA-Public Use
  Company Number: None

PATIENT
  Age: 35 Year
  Sex: Female
  Weight: 104.33 kg

DRUGS (2)
  1. METHADONE [Concomitant]
     Active Substance: METHADONE HYDROCHLORIDE
  2. NUVARING [Suspect]
     Active Substance: ETHINYL ESTRADIOL\ETONOGESTREL
     Indication: CONTRACEPTION
     Route: 067

REACTIONS (2)
  - Chest pain [None]
  - Migraine [None]

NARRATIVE: CASE EVENT DATE: 20151024
